FAERS Safety Report 5543008-5 (Version None)
Quarter: 2007Q4

REPORT INFORMATION
  Report Type: 
  Country: None (occurrence: None)
  Receive Date: 20071210
  Receipt Date: 20071004
  Transmission Date: 20080405
  Serious: No
  Sender: FDA-Public Use
  Company Number: US-AMGEN-US239892

PATIENT
  Sex: Female
  Weight: 138 kg

DRUGS (11)
  1. ENBREL [Suspect]
     Indication: PSORIATIC ARTHROPATHY
     Route: 058
     Dates: start: 20070820
  2. CELEBREX [Concomitant]
  3. WELLBUTRIN [Concomitant]
  4. LYRICA [Concomitant]
  5. ORPHENADRINE CITRATE [Concomitant]
  6. CALCIUM [Concomitant]
  7. MEDROXYPROGESTERONE [Concomitant]
  8. ASPIRIN [Concomitant]
  9. NASONEX [Concomitant]
  10. ESTROGENS [Concomitant]
     Route: 062
  11. AMPHETAMINE [Concomitant]

REACTIONS (2)
  - NAUSEA [None]
  - PAIN [None]
